FAERS Safety Report 16084734 (Version 1)
Quarter: 2019Q1

REPORT INFORMATION
  Report Type: Spontaneous
  Country: AU (occurrence: AU)
  Receive Date: 20190318
  Receipt Date: 20190318
  Transmission Date: 20190418
  Serious: Yes (Other)
  Sender: FDA-Public Use
  Company Number: AU-MYLANLABS-2019M1024252

PATIENT
  Age: 49 Year
  Sex: Female

DRUGS (2)
  1. PROPRANOLOL [Suspect]
     Active Substance: PROPRANOLOL HYDROCHLORIDE
     Indication: LONG QT SYNDROME
     Route: 065
  2. METOPROLOL. [Suspect]
     Active Substance: METOPROLOL
     Indication: LONG QT SYNDROME
     Route: 065

REACTIONS (5)
  - Fluid retention [Unknown]
  - Major depression [Recovering/Resolving]
  - Overdose [Recovering/Resolving]
  - Condition aggravated [Recovering/Resolving]
  - Sleep terror [Unknown]
